FAERS Safety Report 8299893-X (Version None)
Quarter: 2012Q2

REPORT INFORMATION
  Report Type: 
  Country: None (occurrence: None)
  Receive Date: 20120419
  Receipt Date: 20120416
  Transmission Date: 20120825
  Serious: Yes (Hospitalization)
  Sender: FDA-Public Use
  Company Number: JP-B.I. PHARMACEUTICALS,INC./RIDGEFIELD-2012-BP-04702NB

PATIENT
  Age: 74 Year
  Sex: Male
  Weight: 68.2 kg

DRUGS (6)
  1. SELBEX [Concomitant]
     Dosage: 150 MG
     Route: 048
  2. BEPRICOR [Concomitant]
     Dosage: 50 MG
     Route: 048
  3. RABEPRAZOLE SODIUM [Concomitant]
     Dosage: 10 MG
     Route: 048
  4. PRADAXA [Suspect]
     Dosage: 300 MG
     Route: 048
     Dates: start: 20110905, end: 20120312
  5. GASMOTIN [Concomitant]
     Dosage: 150 MG
     Route: 048
  6. PRADAXA [Suspect]
     Indication: PROPHYLAXIS
     Dosage: 220 MG
     Route: 048
     Dates: start: 20110516, end: 20110904

REACTIONS (1)
  - CEREBRAL INFARCTION [None]
